FAERS Safety Report 9282253 (Version 1)
Quarter: 2013Q2

REPORT INFORMATION
  Report Type: Spontaneous
  Country: US (occurrence: US)
  Receive Date: 20130510
  Receipt Date: 20130510
  Transmission Date: 20140414
  Serious: No
  Sender: FDA-Public Use
  Company Number: US-PFIZER INC-2013144033

PATIENT
  Age: 69 Year
  Sex: Female

DRUGS (10)
  1. XELJANZ [Suspect]
     Indication: RHEUMATOID ARTHRITIS
     Dosage: 5 MG, 2X/DAY
     Route: 048
     Dates: start: 201303
  2. CYMBALTA [Concomitant]
     Dosage: UNK
  3. CILOSTAZOL [Concomitant]
     Dosage: UNK
  4. LOSARTAN [Concomitant]
     Dosage: UNK
  5. AMLODIPINE [Concomitant]
     Dosage: UNK
  6. METOPROLOL [Concomitant]
     Dosage: UNK
  7. MIRTAZAPINE [Concomitant]
     Dosage: UNK
  8. TIZANIDINE [Concomitant]
     Dosage: UNK
  9. ALPRAZOLAM [Concomitant]
     Dosage: UNK
  10. OXYCODONE [Concomitant]
     Dosage: UNK

REACTIONS (2)
  - Confusional state [Unknown]
  - Dizziness [Unknown]
